FAERS Safety Report 15645419 (Version 1)
Quarter: 2018Q4

REPORT INFORMATION
  Report Type: Spontaneous
  Country: FR (occurrence: FR)
  Receive Date: 20181121
  Receipt Date: 20181121
  Transmission Date: 20190205
  Serious: Yes (Other)
  Sender: FDA-Public Use
  Company Number: FR-009507513-1809FRA010871

PATIENT
  Age: 17 Year
  Sex: Female

DRUGS (1)
  1. NEXPLANON [Suspect]
     Active Substance: ETONOGESTREL
     Dosage: 1 DOSAGE FORM
     Route: 059
     Dates: start: 20180507, end: 20180922

REACTIONS (4)
  - Implant site abscess [Not Recovered/Not Resolved]
  - Implant site pain [Unknown]
  - Back pain [Not Recovered/Not Resolved]
  - Tonsillitis bacterial [Recovered/Resolved]

NARRATIVE: CASE EVENT DATE: 2018
